FAERS Safety Report 7757728-5 (Version None)
Quarter: 2011Q3

REPORT INFORMATION
  Report Type: 
  Country: None (occurrence: None)
  Receive Date: 20110916
  Receipt Date: 20101029
  Transmission Date: 20111222
  Serious: No
  Sender: FDA-Public Use
  Company Number: US-ALLERGAN-1013982US

PATIENT
  Sex: Female

DRUGS (2)
  1. ACUVAIL [Suspect]
     Indication: RETINAL DISORDER
     Dosage: UNK
     Route: 047
     Dates: start: 20100831
  2. HUMIRA [Concomitant]
     Indication: ARTHRITIS

REACTIONS (7)
  - NASAL CONGESTION [None]
  - OEDEMA MOUTH [None]
  - EYE PRURITUS [None]
  - SNEEZING [None]
  - OEDEMA PERIPHERAL [None]
  - FOREIGN BODY SENSATION IN EYES [None]
  - SWELLING FACE [None]
